FAERS Safety Report 18519960 (Version 3)
Quarter: 2024Q2

REPORT INFORMATION
  Report Type: Spontaneous
  Country: US (occurrence: US)
  Receive Date: 20201119
  Receipt Date: 20240405
  Transmission Date: 20240715
  Serious: Yes (Death, Life-Threatening, Hospitalization, Other)
  Sender: FDA-Public Use
  Company Number: None

PATIENT
  Age: 43 Year
  Sex: Female

DRUGS (6)
  1. MYCOPHENOLATE MOFETIL [Suspect]
     Active Substance: MYCOPHENOLATE MOFETIL
     Indication: Immunosuppressant drug therapy
     Dosage: 1000 MILLIGRAM, BID
     Route: 065
  2. TACROLIMUS [Suspect]
     Active Substance: TACROLIMUS
     Indication: Immunosuppressant drug therapy
     Dosage: UNK
     Route: 065
  3. BELATACEPT [Suspect]
     Active Substance: BELATACEPT
     Indication: Immunosuppressant drug therapy
     Dosage: 5 MILLIGRAM/KILOGRAM, EVERY 4 WEEK
     Route: 065
  4. PREDNISONE [Suspect]
     Active Substance: PREDNISONE
     Indication: Immunosuppressant drug therapy
     Dosage: 5 MILLIGRAM, QD
     Route: 065
  5. PREDNISONE [Suspect]
     Active Substance: PREDNISONE
     Dosage: 10 MILLIGRAM, QD
     Route: 065
  6. ANIDULAFUNGIN [Concomitant]
     Active Substance: ANIDULAFUNGIN
     Indication: Evidence based treatment
     Dosage: UNK
     Route: 065

REACTIONS (18)
  - Atelectasis [Fatal]
  - Multiple organ dysfunction syndrome [Fatal]
  - Pneumothorax [Fatal]
  - Muscle necrosis [Fatal]
  - Cyst rupture [Fatal]
  - Mediastinal shift [Fatal]
  - Respiratory failure [Fatal]
  - Genital herpes simplex [Fatal]
  - Klebsiella infection [Fatal]
  - Septic shock [Fatal]
  - Pneumocystis jirovecii pneumonia [Fatal]
  - Disseminated cryptococcosis [Fatal]
  - Herpes simplex [Fatal]
  - Infective myositis [Fatal]
  - Herpes simplex meningitis [Fatal]
  - Meningitis cryptococcal [Fatal]
  - Pseudomonas infection [Fatal]
  - Cryptococcosis [Fatal]
